FAERS Safety Report 26074273 (Version 2)
Quarter: 2025Q4

REPORT INFORMATION
  Report Type: Spontaneous
  Country: BR (occurrence: BR)
  Receive Date: 20251121
  Receipt Date: 20251201
  Transmission Date: 20260118
  Serious: Yes (Other)
  Sender: CATALYST PHARMA
  Company Number: BR-CATALYSTPHARMACEUTICALPARTNERS-BR-CATA-25-01782

PATIENT

DRUGS (6)
  1. FYCOMPA [Suspect]
     Active Substance: PERAMPANEL
     Indication: Frontal lobe epilepsy
     Dosage: 12 MILLIGRAM(S) FREQUENCY UNKNOWN
     Route: 048
     Dates: start: 2019
  2. FYCOMPA [Suspect]
     Active Substance: PERAMPANEL
     Dosage: 6 MILLIGRAM(S) FREQUENCY UNKNOWN
     Route: 048
  3. TRILEPTAL [Concomitant]
     Active Substance: OXCARBAZEPINE
     Indication: Frontal lobe epilepsy
     Dosage: DOSE AND FREQUENCY UNKNOWN.
     Route: 065
  4. RIVOTRIL [Concomitant]
     Active Substance: CLONAZEPAM
     Indication: Frontal lobe epilepsy
     Dosage: DOSE AND FREQUENCY UNKNOWN
     Route: 065
  5. VIMPAT [Concomitant]
     Active Substance: LACOSAMIDE
     Indication: Frontal lobe epilepsy
     Dosage: DOSE AND FREQUENCY UNKNOWN.
     Route: 065
  6. TOPIRAMATE [Concomitant]
     Active Substance: TOPIRAMATE
     Indication: Frontal lobe epilepsy
     Dosage: DOSE AND FREQUENCY UNKNOWN
     Route: 065

REACTIONS (6)
  - Epilepsy [Recovered/Resolved]
  - Back injury [Recovered/Resolved]
  - Fall [Recovered/Resolved]
  - Head injury [Recovered/Resolved]
  - Mood altered [Recovered/Resolved]
  - Product availability issue [Unknown]
